FAERS Safety Report 11021719 (Version 2)
Quarter: 2015Q2

REPORT INFORMATION
  Report Type: Spontaneous
  Country: US (occurrence: US)
  Receive Date: 20150413
  Receipt Date: 20150508
  Transmission Date: 20150821
  Serious: Yes (Death, Life-Threatening, Other)
  Sender: FDA-Public Use
  Company Number: US-009507513-1504USA003861

PATIENT
  Sex: Female
  Weight: 79.37 kg

DRUGS (3)
  1. JANUVIA [Suspect]
     Active Substance: SITAGLIPTIN PHOSPHATE
     Indication: TYPE 2 DIABETES MELLITUS
     Dosage: 100 MG, QD
     Route: 048
     Dates: start: 20070206, end: 20070804
  2. BYETTA [Suspect]
     Active Substance: EXENATIDE
     Indication: TYPE 2 DIABETES MELLITUS
     Dosage: 5 MICROGRAM, BID
     Dates: start: 20091026, end: 20120411
  3. JANUVIA [Suspect]
     Active Substance: SITAGLIPTIN PHOSPHATE
     Dosage: 50 MG, QD
     Route: 048
     Dates: start: 20071017, end: 20090731

REACTIONS (17)
  - Hypertension [Unknown]
  - Bile duct stent insertion [Unknown]
  - Hepatic lesion [Unknown]
  - Lung consolidation [Unknown]
  - Atelectasis [Unknown]
  - Pleural fibrosis [Unknown]
  - Nephrolithiasis [Unknown]
  - Pleural effusion [Unknown]
  - Death [Fatal]
  - Gout [Unknown]
  - Renal cyst [Unknown]
  - Chronic gastritis [Not Recovered/Not Resolved]
  - Pancreatic carcinoma metastatic [Unknown]
  - Pancreatitis [Unknown]
  - Thyroid neoplasm [Unknown]
  - Anaemia [Unknown]
  - Metastases to liver [Unknown]

NARRATIVE: CASE EVENT DATE: 20080814
